FAERS Safety Report 5368059-5 (Version None)
Quarter: 2007Q2

REPORT INFORMATION
  Report Type: 
  Country: None (occurrence: None)
  Receive Date: 20070622
  Receipt Date: 20070611
  Transmission Date: 20071010
  Serious: Yes (Hospitalization, Other)
  Sender: FDA-Public Use
  Company Number: US-PFIZER INC-2007049049

PATIENT
  Sex: Male
  Weight: 57.272 kg

DRUGS (4)
  1. CHANTIX [Suspect]
     Indication: SMOKING CESSATION THERAPY
  2. ALBUTEROL [Concomitant]
  3. SPIRIVA [Concomitant]
  4. XOPENEX [Concomitant]

REACTIONS (4)
  - DECREASED APPETITE [None]
  - NEOPLASM MALIGNANT [None]
  - PNEUMONIA [None]
  - WEIGHT DECREASED [None]
